FAERS Safety Report 4602177-1 (Version None)
Quarter: 2005Q2

REPORT INFORMATION
  Report Type: 
  Country: None (occurrence: None)
  Receive Date: 20050215
  Receipt Date: 20040915
  Transmission Date: 20051028
  Serious: Yes (Hospitalization)
  Sender: FDA-Public Use
  Company Number: MC200400552

PATIENT
  Age: 88 Year
  Sex: Female
  Weight: 41.3 kg

DRUGS (1)
  1. ANGIOMAX [Suspect]

REACTIONS (1)
  - STENT OCCLUSION [None]
